FAERS Safety Report 10179149 (Version 1)
Quarter: 2014Q2

REPORT INFORMATION
  Report Type: Spontaneous
  Country: IR (occurrence: IR)
  Receive Date: 20140519
  Receipt Date: 20140519
  Transmission Date: 20141212
  Serious: Yes (Death, Other)
  Sender: FDA-Public Use
  Company Number: PHHY2014IR057610

PATIENT
  Age: 27 Year
  Sex: Female

DRUGS (2)
  1. PREDNISOLONE [Suspect]
     Indication: PEMPHIGUS
  2. AZATHIOPRINE [Concomitant]

REACTIONS (10)
  - Strongyloidiasis [Fatal]
  - Abnormal faeces [Fatal]
  - Chronic gastritis [Unknown]
  - Metaplasia [Unknown]
  - Vomiting [Unknown]
  - Constipation [Unknown]
  - Abdominal pain [Unknown]
  - Rectal haemorrhage [Unknown]
  - Haemorrhage [Unknown]
  - Maternal exposure during pregnancy [Unknown]
